FAERS Safety Report 5366097-X (Version None)
Quarter: 2007Q2

REPORT INFORMATION
  Report Type: 
  Country: None (occurrence: None)
  Receive Date: 20070611
  Receipt Date: 20070109
  Transmission Date: 20071010
  Serious: Yes (Hospitalization, Other)
  Sender: FDA-Public Use
  Company Number: USA-2006-0023936

PATIENT
  Age: 20 Year
  Sex: Male

DRUGS (3)
  1. OXYCONTIN [Suspect]
     Indication: PAIN
  2. VICODIN [Suspect]
     Indication: PAIN
  3. PERCOCET [Suspect]
     Indication: PAIN

REACTIONS (6)
  - DRUG DEPENDENCE [None]
  - LOSS OF CONSCIOUSNESS [None]
  - OVERDOSE [None]
  - RESPIRATORY ARREST [None]
  - RESPIRATORY DISORDER [None]
  - SUBSTANCE ABUSE [None]
